FAERS Safety Report 20007146 (Version 1)
Quarter: 2021Q4

REPORT INFORMATION
  Report Type: Spontaneous
  Country: US (occurrence: US)
  Receive Date: 20211028
  Receipt Date: 20211028
  Transmission Date: 20220303
  Serious: No
  Sender: FDA-Public Use
  Company Number: US-SA-2021SA300807

PATIENT
  Sex: Female

DRUGS (1)
  1. DUPIXENT [Suspect]
     Active Substance: DUPILUMAB
     Dosage: UNK
     Dates: start: 202107

REACTIONS (4)
  - Concussion [Unknown]
  - Pruritus [Not Recovered/Not Resolved]
  - Eye pruritus [Unknown]
  - Dry eye [Unknown]
